FAERS Safety Report 15612488 (Version 2)
Quarter: 2020Q2

REPORT INFORMATION
  Report Type: Spontaneous
  Country: GB (occurrence: GB)
  Receive Date: 20181113
  Receipt Date: 20200528
  Transmission Date: 20200713
  Serious: Yes (Death, Hospitalization, Other)
  Sender: FDA-Public Use
  Company Number: PHHY2018GB151450

PATIENT
  Sex: Female

DRUGS (58)
  1. DOCETAXEL. [Suspect]
     Active Substance: DOCETAXEL
     Indication: HER2 POSITIVE BREAST CANCER
     Dosage: 132 MG, Q3W
     Route: 042
     Dates: start: 20150519, end: 20150708
  2. TRASTUZUMAB. [Suspect]
     Active Substance: TRASTUZUMAB
     Dosage: 450 MG, TIW MAINTENANCE DOSE
     Route: 042
     Dates: start: 20150611
  3. OXYCODONE [Concomitant]
     Active Substance: OXYCODONE
     Indication: PRODUCT USED FOR UNKNOWN INDICATION
     Dosage: 10 MG, UNK
     Route: 048
     Dates: start: 20150521
  4. 3M CAVILON ANTIFUNGAL [Concomitant]
     Active Substance: MICONAZOLE NITRATE
     Indication: PRODUCT USED FOR UNKNOWN INDICATION
     Dosage: 2 DF, QD (CAVILON DURABLE BARRIER CREAMAPPLIED DURING CHANGING PICC LINE DRESSINGS)
     Route: 061
     Dates: start: 20151028
  5. CYCLIZINE HYDROCHLORIDE [Concomitant]
     Active Substance: CYCLIZINE HYDROCHLORIDE
     Dosage: 50 MG
     Route: 048
     Dates: start: 20150521, end: 201602
  6. ONDANSETRON [Concomitant]
     Active Substance: ONDANSETRON
     Dosage: 8 MG
     Route: 048
     Dates: start: 20160210
  7. SANDO K [Concomitant]
     Indication: PRODUCT USED FOR UNKNOWN INDICATION
     Dosage: 2 ?G/L, QD
     Route: 048
     Dates: start: 20150609, end: 20150611
  8. TRASTUZUMAB. [Suspect]
     Active Substance: TRASTUZUMAB
     Dosage: 600 MG, ONCE/SINGLE (LOADING DOSE)
     Route: 042
     Dates: start: 20150520
  9. DENOSUMAB [Suspect]
     Active Substance: DENOSUMAB
     Indication: HER2 POSITIVE BREAST CANCER
     Dosage: 120 MG, QMO
     Route: 058
     Dates: start: 20131007, end: 20160616
  10. DENOSUMAB [Suspect]
     Active Substance: DENOSUMAB
     Dosage: 120 MG, QD
     Route: 042
     Dates: start: 20150912, end: 20150912
  11. DOMPERIDONE [Concomitant]
     Active Substance: DOMPERIDONE
     Dosage: 30 MG, QD
     Route: 048
     Dates: start: 20150912, end: 20150914
  12. DEXAMETHASONE. [Concomitant]
     Active Substance: DEXAMETHASONE
     Indication: PRODUCT USED FOR UNKNOWN INDICATION
     Dosage: 4 MG, QD (4 TABLETS 2 A DAY)
     Route: 048
     Dates: start: 20150610, end: 20150612
  13. DEXAMETHASONE. [Concomitant]
     Active Substance: DEXAMETHASONE
     Dosage: 4 TABLETS 2 A DAY
     Route: 048
     Dates: start: 20150610, end: 20150612
  14. SODIUM CHLORIDE. [Concomitant]
     Active Substance: SODIUM CHLORIDE
     Dosage: UNK
     Route: 042
     Dates: start: 20150609, end: 20150609
  15. OXYCODONE [Concomitant]
     Active Substance: OXYCODONE
     Dosage: 40 MG, QD
     Route: 048
     Dates: start: 20150521
  16. LANSOPRAZOLE. [Concomitant]
     Active Substance: LANSOPRAZOLE
     Indication: PRODUCT USED FOR UNKNOWN INDICATION
     Dosage: 30 MG, QD
     Route: 048
     Dates: start: 20150521
  17. PERTUZUMAB. [Suspect]
     Active Substance: PERTUZUMAB
     Dosage: MAINTENANCE DOSE
     Route: 042
     Dates: start: 20150611
  18. DOMPERIDONE [Concomitant]
     Active Substance: DOMPERIDONE
     Dosage: 10 MG, QD
     Route: 048
  19. DEXAMETHASONE. [Concomitant]
     Active Substance: DEXAMETHASONE
     Dosage: 2 MG, QD
     Route: 048
     Dates: start: 20150613, end: 20150704
  20. DEXAMETHASONE. [Concomitant]
     Active Substance: DEXAMETHASONE
     Dosage: 16 MG, QD (4 TABLETS)
     Route: 048
     Dates: start: 20160628
  21. DEXAMETHASONE. [Concomitant]
     Active Substance: DEXAMETHASONE
     Route: 048
  22. DEXAMETHASONE. [Concomitant]
     Active Substance: DEXAMETHASONE
     Dosage: 4 TABLETS 2 A DAY
     Route: 048
     Dates: start: 20150821, end: 20150823
  23. HEPARIN [Concomitant]
     Active Substance: HEPARIN SODIUM
     Indication: PRODUCT USED FOR UNKNOWN INDICATION
     Dosage: 500 IU IN 5 ML
     Route: 042
     Dates: start: 20150527, end: 20150527
  24. ONDANSETRON [Concomitant]
     Active Substance: ONDANSETRON
     Indication: PRODUCT USED FOR UNKNOWN INDICATION
     Dosage: 8 MG
     Route: 048
     Dates: start: 20150729
  25. CAPECITABINE. [Suspect]
     Active Substance: CAPECITABINE
     Dosage: 500 MG, Q3W
     Route: 048
     Dates: start: 20160510, end: 20160521
  26. DENOSUMAB [Suspect]
     Active Substance: DENOSUMAB
     Dosage: 120 MG, QD
     Route: 042
     Dates: start: 20150701, end: 20150701
  27. DOMPERIDONE [Concomitant]
     Active Substance: DOMPERIDONE
     Indication: MALAISE
     Dosage: 30 MG, QD
     Route: 048
     Dates: start: 20150609, end: 20150611
  28. DOMPERIDONE [Concomitant]
     Active Substance: DOMPERIDONE
     Dosage: 10 MG
     Route: 048
     Dates: start: 20150727, end: 20150729
  29. DOMPERIDONE [Concomitant]
     Active Substance: DOMPERIDONE
     Dosage: 10 MG
     Route: 048
     Dates: start: 20150912, end: 20150914
  30. DEXAMETHASONE. [Concomitant]
     Active Substance: DEXAMETHASONE
     Dosage: UNK
     Route: 048
  31. DEXAMETHASONE. [Concomitant]
     Active Substance: DEXAMETHASONE
     Route: 048
     Dates: start: 20150729
  32. DEXAMETHASONE. [Concomitant]
     Active Substance: DEXAMETHASONE
     Dosage: 4 TABLETS 2 A DAY
     Route: 048
     Dates: start: 20150912, end: 20150914
  33. SODIUM CHLORIDE. [Concomitant]
     Active Substance: SODIUM CHLORIDE
     Indication: PRODUCT USED FOR UNKNOWN INDICATION
     Dosage: UNK
     Route: 042
  34. DOMPERIDONE [Concomitant]
     Active Substance: DOMPERIDONE
     Dosage: 30 MG, QD
     Route: 048
     Dates: start: 20150727, end: 20150729
  35. DEXAMETHASONE. [Concomitant]
     Active Substance: DEXAMETHASONE
     Dosage: 4 MG, QD (4 TABLETS 2 A DAY)
     Route: 048
     Dates: start: 20150821, end: 20150823
  36. DEXAMETHASONE. [Concomitant]
     Active Substance: DEXAMETHASONE
     Dosage: 4 MG, QD (4 TABLETS 2 A DAY)
     Route: 048
     Dates: start: 20150727, end: 20150729
  37. 3M CAVILON ANTIFUNGAL [Concomitant]
     Active Substance: MICONAZOLE NITRATE
     Dosage: CAVILON DURABLE BARRIER CREAMAPPLIED DURING CHANGING PICC LINE DRESSINGS
     Route: 061
     Dates: start: 20151028
  38. LOPERAMIDE [Concomitant]
     Active Substance: LOPERAMIDE
     Dosage: 2 MG
     Route: 048
     Dates: start: 20150821
  39. DOCETAXEL. [Suspect]
     Active Substance: DOCETAXEL
     Dosage: 116 MG, Q3W
     Route: 042
     Dates: start: 20150708, end: 20150729
  40. DOCETAXEL. [Suspect]
     Active Substance: DOCETAXEL
     Dosage: 95 MG, Q3W
     Route: 042
     Dates: start: 20150826, end: 20150915
  41. DOMPERIDONE [Concomitant]
     Active Substance: DOMPERIDONE
     Dosage: 10 MG
     Route: 048
     Dates: start: 20150609, end: 20150611
  42. DOMPERIDONE [Concomitant]
     Active Substance: DOMPERIDONE
     Dosage: 10 MG
     Route: 048
     Dates: start: 20160210
  43. DEXAMETHASONE. [Concomitant]
     Active Substance: DEXAMETHASONE
     Dosage: 4 TABLETS
     Route: 048
     Dates: start: 20160628, end: 20160718
  44. CYCLIZINE HYDROCHLORIDE [Concomitant]
     Active Substance: CYCLIZINE HYDROCHLORIDE
     Indication: PRODUCT USED FOR UNKNOWN INDICATION
     Dosage: 150 MG, QD
     Route: 048
     Dates: start: 20150521, end: 201602
  45. LOPERAMIDE [Concomitant]
     Active Substance: LOPERAMIDE
     Indication: PRODUCT USED FOR UNKNOWN INDICATION
     Dosage: 2 MG, UNK
     Route: 048
  46. TRASTUZUMAB. [Suspect]
     Active Substance: TRASTUZUMAB
     Indication: HER2 POSITIVE BREAST CANCER
     Dosage: 600 MG LOADING DOSE (MODIFIED DOSE)
     Route: 042
     Dates: start: 20150518
  47. PERTUZUMAB. [Suspect]
     Active Substance: PERTUZUMAB
     Indication: HER2 POSITIVE BREAST CANCER
     Dosage: LOADING DOSE
     Route: 042
     Dates: start: 20150518, end: 20150518
  48. DENOSUMAB [Suspect]
     Active Substance: DENOSUMAB
     Dosage: 120 MG, QMO
     Route: 058
     Dates: start: 20150430
  49. DENOSUMAB [Suspect]
     Active Substance: DENOSUMAB
     Dosage: 120 MG, QD
     Route: 042
     Dates: start: 20150821, end: 20150821
  50. DEXAMETHASONE. [Concomitant]
     Active Substance: DEXAMETHASONE
     Dosage: 4 MG, QD  (4 TABLETS 2 A DAY)
     Route: 048
     Dates: start: 20150912, end: 20150914
  51. CHLORHEXIDINE GLUCONATE. [Concomitant]
     Active Substance: CHLORHEXIDINE GLUCONATE
     Dosage: 5 ML
     Route: 048
     Dates: start: 20150708
  52. OXYCODONE [Concomitant]
     Active Substance: OXYCODONE
     Dosage: 5 MG
     Route: 048
     Dates: start: 20150521
  53. ONDANSETRON [Concomitant]
     Active Substance: ONDANSETRON
     Dosage: 8 MG
     Route: 048
     Dates: start: 20150826
  54. CAPECITABINE. [Suspect]
     Active Substance: CAPECITABINE
     Indication: HER2 POSITIVE BREAST CANCER
     Dosage: 1500 MG AND 2000 MG
     Route: 048
     Dates: start: 20160510, end: 20160531
  55. DEXAMETHASONE. [Concomitant]
     Active Substance: DEXAMETHASONE
     Dosage: 4 TABLETS 2 A DAY
     Route: 048
     Dates: start: 20150727, end: 20150729
  56. CHLORHEXIDINE GLUCONATE. [Concomitant]
     Active Substance: CHLORHEXIDINE GLUCONATE
     Indication: PRODUCT USED FOR UNKNOWN INDICATION
     Dosage: 20 ML, QD
     Route: 048
     Dates: start: 20150708
  57. OXYCODONE [Concomitant]
     Active Substance: OXYCODONE
     Dosage: 20 MG
     Route: 048
     Dates: start: 20150521
  58. CYCLIZINE HYDROCHLORIDE [Concomitant]
     Active Substance: CYCLIZINE HYDROCHLORIDE
     Dosage: 50 MG
     Route: 048
     Dates: start: 20160627

REACTIONS (33)
  - Pericardial effusion [Recovered/Resolved]
  - Lethargy [Recovered/Resolved]
  - Decreased appetite [Recovered/Resolved]
  - Cushingoid [Recovered/Resolved]
  - Weight increased [Recovering/Resolving]
  - Metastases to meninges [Fatal]
  - Visual impairment [Recovered/Resolved]
  - Hypocalcaemia [Recovered/Resolved]
  - Eye haemorrhage [Recovered/Resolved]
  - Neuropathy peripheral [Recovered/Resolved]
  - Erythema [Recovered/Resolved]
  - Spinal fracture [Recovered/Resolved]
  - Claustrophobia [Recovered/Resolved]
  - Vomiting [Recovered/Resolved]
  - Eye pruritus [Recovered/Resolved]
  - Vision blurred [Recovered/Resolved]
  - Pruritus [Recovered/Resolved]
  - Rash [Recovered/Resolved]
  - Hypoglycaemia [Recovered/Resolved]
  - Dry eye [Recovered/Resolved]
  - Catheter site inflammation [Recovered/Resolved]
  - Vomiting [Recovered/Resolved]
  - Palpitations [Recovered/Resolved]
  - Malaise [Recovering/Resolving]
  - Rash erythematous [Recovered/Resolved]
  - Back pain [Not Recovered/Not Resolved]
  - Impaired gastric emptying [Recovered/Resolved]
  - Breast tenderness [Unknown]
  - Anxiety [Recovered/Resolved]
  - Fatigue [Recovering/Resolving]
  - Nausea [Recovering/Resolving]
  - Hypoglycaemia [Recovered/Resolved]
  - Vomiting [Recovered/Resolved]

NARRATIVE: CASE EVENT DATE: 2015
